FAERS Safety Report 6314616-9 (Version None)
Quarter: 2009Q3

REPORT INFORMATION
  Report Type: 
  Country: None (occurrence: None)
  Receive Date: 20090817
  Receipt Date: 20090805
  Transmission Date: 20100115
  Serious: Yes (Other)
  Sender: FDA-Public Use
  Company Number: ADR12972009 (MHRA ADR NO.: ADR 20441352-004)

PATIENT
  Age: 51 Year
  Sex: Female

DRUGS (4)
  1. CIPROFLOXACIN [Suspect]
  2. LYRICA [Concomitant]
  3. PHENYTOIN SODIUM CAP [Concomitant]
  4. LAMOTRIGINE [Concomitant]

REACTIONS (2)
  - DRUG INTERACTION [None]
  - EPILEPSY [None]
